FAERS Safety Report 20360898 (Version 1)
Quarter: 2022Q1

REPORT INFORMATION
  Report Type: Spontaneous
  Country: US (occurrence: None)
  Receive Date: 20220120
  Receipt Date: 20220120
  Transmission Date: 20220423
  Serious: Yes (Hospitalization)
  Sender: FDA-Public Use
  Company Number: None

PATIENT
  Age: 58 Year
  Sex: Female

DRUGS (1)
  1. CAPECITABINE [Suspect]
     Active Substance: CAPECITABINE
     Dosage: 1000 MG BID ORAL?
     Route: 048
     Dates: start: 202201

REACTIONS (3)
  - Neoplasm malignant [None]
  - Off label use [None]
  - Spinal fracture [None]

NARRATIVE: CASE EVENT DATE: 20220105
